FAERS Safety Report 7770696-5 (Version None)
Quarter: 2011Q3

REPORT INFORMATION
  Report Type: 
  Country: None (occurrence: None)
  Receive Date: 20110922
  Receipt Date: 20101102
  Transmission Date: 20111222
  Serious: No
  Sender: FDA-Public Use
  Company Number: US-ASTRAZENECA-2010SE51925

PATIENT
  Age: 52 Year
  Sex: Female
  Weight: 117.9 kg

DRUGS (21)
  1. SEROQUEL [Suspect]
     Route: 048
     Dates: start: 20100101
  2. SEROQUEL [Suspect]
     Indication: DELUSION
     Route: 048
     Dates: start: 20050101, end: 20100101
  3. LEVOTHYROXINE SODIUM [Concomitant]
     Indication: THYROID DISORDER
  4. SEROQUEL [Suspect]
     Route: 048
     Dates: start: 20100101
  5. FLUOXETINE [Concomitant]
  6. NABUMETONE [Concomitant]
  7. SEROQUEL [Suspect]
     Route: 048
  8. SEROQUEL [Suspect]
     Route: 048
     Dates: start: 20100101
  9. SEROQUEL [Suspect]
     Route: 048
     Dates: start: 20100101
  10. SEROQUEL [Suspect]
     Route: 048
     Dates: start: 20100101
  11. SEROQUEL [Suspect]
     Route: 048
     Dates: start: 20100101
  12. METFORMIN [Concomitant]
     Indication: DIABETES MELLITUS
  13. SEROQUEL [Suspect]
     Indication: ANXIETY
     Route: 048
     Dates: start: 20050101, end: 20100101
  14. SEROQUEL [Suspect]
     Indication: DEPRESSION
     Route: 048
     Dates: start: 20050101, end: 20100101
  15. SEROQUEL [Suspect]
     Route: 048
  16. SEROQUEL [Suspect]
     Route: 048
  17. SEROQUEL [Suspect]
     Route: 048
     Dates: start: 20100101
  18. SEROQUEL [Suspect]
     Route: 048
     Dates: start: 20100101
  19. SEROQUEL [Suspect]
     Route: 048
     Dates: start: 20100101
  20. SIMVASTATIN [Concomitant]
     Indication: BLOOD CHOLESTEROL INCREASED
  21. ENALAPRIL MALEATE [Concomitant]
     Indication: PROPHYLAXIS

REACTIONS (6)
  - EATING DISORDER [None]
  - DEPRESSED MOOD [None]
  - INCORRECT DRUG DOSAGE FORM ADMINISTERED [None]
  - CHOKING SENSATION [None]
  - SOMNOLENCE [None]
  - BLOOD CHOLESTEROL INCREASED [None]
